FAERS Safety Report 5285889-9 (Version None)
Quarter: 2007Q1

REPORT INFORMATION
  Report Type: 
  Country: None (occurrence: None)
  Receive Date: 20070329
  Receipt Date: 20070314
  Transmission Date: 20070707
  Serious: Yes (Hospitalization, Other)
  Sender: FDA-Public Use
  Company Number: 2007S1002204

PATIENT
  Age: 47 Month
  Sex: Male

DRUGS (3)
  1. FENTANYL TRANSDERMAL SYSTEM [Suspect]
     Indication: BACK PAIN
     Dosage: 50 UG/HR; EVERY OTHER DAY;TRANSDERMAL
     Route: 062
     Dates: start: 20060901, end: 20070201
  2. PERCOCET-5 [Concomitant]
  3. GABAPENTIN [Concomitant]

REACTIONS (9)
  - CONDITION AGGRAVATED [None]
  - CONVULSION [None]
  - DRUG LEVEL INCREASED [None]
  - DRUG WITHDRAWAL SYNDROME [None]
  - NAUSEA [None]
  - PAIN [None]
  - VOMITING [None]
  - WEIGHT DECREASED [None]
  - WRONG TECHNIQUE IN DRUG USAGE PROCESS [None]
